FAERS Safety Report 8136802-8 (Version None)
Quarter: 2012Q1

REPORT INFORMATION
  Report Type: 
  Country: None (occurrence: None)
  Receive Date: 20120214
  Receipt Date: 20120203
  Transmission Date: 20120608
  Serious: Yes (Disabling, Other)
  Sender: FDA-Public Use
  Company Number: CO-PFIZER INC-2011302331

PATIENT
  Age: 10 Year
  Sex: Female
  Weight: 33.7 kg

DRUGS (2)
  1. SILDENAFIL CITRATE [Suspect]
     Dosage: 20 MG, 3X/DAY
     Route: 048
     Dates: start: 20110811, end: 20111219
  2. SILDENAFIL CITRATE [Suspect]
     Dosage: 40 MG, 3X/DAY
     Route: 048
     Dates: start: 20071026, end: 20110810

REACTIONS (1)
  - DEAFNESS UNILATERAL [None]
